FAERS Safety Report 6492862-1 (Version None)
Quarter: 2009Q4

REPORT INFORMATION
  Report Type: 
  Country: None (occurrence: None)
  Receive Date: 20091211
  Receipt Date: 20091211
  Transmission Date: 20100525
  Serious: No
  Sender: FDA-Public Use
  Company Number: None

PATIENT
  Age: 57 Year
  Sex: Male
  Weight: 97.5234 kg

DRUGS (1)
  1. FINASTERIDE [Suspect]
     Indication: DYSURIA
     Dosage: 5 MG DAILY PO
     Route: 048
     Dates: start: 20091028, end: 20091128

REACTIONS (5)
  - CONFUSIONAL STATE [None]
  - ERECTILE DYSFUNCTION [None]
  - GENITAL HYPOAESTHESIA [None]
  - LOSS OF LIBIDO [None]
  - THINKING ABNORMAL [None]
